FAERS Safety Report 24367875 (Version 1)
Quarter: 2024Q3

REPORT INFORMATION
  Report Type: Spontaneous
  Country: US (occurrence: None)
  Receive Date: 20240921
  Receipt Date: 20240921
  Transmission Date: 20241017
  Serious: Yes (Hospitalization, Other)
  Sender: Public
  Company Number: None

PATIENT
  Age: 67 Year
  Sex: Female
  Weight: 62.6 kg

DRUGS (1)
  1. CEFADROXIL [Suspect]
     Active Substance: CEFADROXIL

REACTIONS (3)
  - Lymphadenopathy [None]
  - Device breakage [None]
  - Post procedural complication [None]

NARRATIVE: CASE EVENT DATE: 20240802
